FAERS Safety Report 7132562-8 (Version None)
Quarter: 2010Q4

REPORT INFORMATION
  Report Type: 
  Country: None (occurrence: None)
  Receive Date: 20101202
  Receipt Date: 20101201
  Transmission Date: 20110411
  Serious: Yes (Hospitalization)
  Sender: FDA-Public Use
  Company Number: PHHO2009DE10993

PATIENT
  Sex: Female
  Weight: 78.9 kg

DRUGS (3)
  1. SANDIMMUNE [Suspect]
     Indication: RENAL TRANSPLANT
     Dosage: 250 MG, DAILY DOSE
     Route: 048
     Dates: start: 20081123
  2. MYFORTIC [Suspect]
     Indication: RENAL TRANSPLANT
     Dosage: 1440 MG, DAILY DOSE
     Route: 048
     Dates: start: 20081123
  3. NO TREATMENT RECEIVED NOMED [Suspect]
     Indication: RENAL TRANSPLANT

REACTIONS (13)
  - ENTEROCOCCAL INFECTION [None]
  - ESCHERICHIA INFECTION [None]
  - ESCHERICHIA SEPSIS [None]
  - HYPOTONIA [None]
  - IMPAIRED HEALING [None]
  - KLEBSIELLA SEPSIS [None]
  - LYMPHOCELE [None]
  - PAIN IN EXTREMITY [None]
  - PYREXIA [None]
  - SURGERY [None]
  - UROSEPSIS [None]
  - WOUND DRAINAGE [None]
  - WOUND NECROSIS [None]
